FAERS Safety Report 21633336 (Version 1)
Quarter: 2022Q4

REPORT INFORMATION
  Report Type: Report from Study
  Country: US (occurrence: US)
  Receive Date: 20221123
  Receipt Date: 20221123
  Transmission Date: 20230112
  Serious: No
  Sender: FDA-Public Use
  Company Number: US-ABBVIE-4175564

PATIENT
  Sex: Male

DRUGS (8)
  1. SKYRIZI [Suspect]
     Active Substance: RISANKIZUMAB-RZAA
     Indication: Psoriasis
     Dosage: 4 AND EVERY 12 WEEKS THEREAFTER
     Route: 058
     Dates: start: 20220202
  2. LITHIUM CARBONATE [Concomitant]
     Active Substance: LITHIUM CARBONATE
     Indication: Product used for unknown indication
  3. NAPROXEN TAB [Concomitant]
     Indication: Product used for unknown indication
  4. L-METHYLFOLA TAB [Concomitant]
     Indication: Product used for unknown indication
  5. VYVANSE CAP [Concomitant]
     Indication: Product used for unknown indication
  6. AMLODIPINE TAB [Concomitant]
     Indication: Product used for unknown indication
  7. OXYBUTYNIN TAB [Concomitant]
     Indication: Product used for unknown indication
  8. CYMBALTA CAP [Concomitant]
     Indication: Product used for unknown indication

REACTIONS (3)
  - Attention deficit hyperactivity disorder [Unknown]
  - Iron deficiency anaemia [Unknown]
  - Back pain [Unknown]
